FAERS Safety Report 19270394 (Version 1)
Quarter: 2021Q2

REPORT INFORMATION
  Report Type: Spontaneous
  Country: ES (occurrence: ES)
  Receive Date: 20210518
  Receipt Date: 20210518
  Transmission Date: 20210717
  Serious: Yes (Other)
  Sender: FDA-Public Use
  Company Number: NVSC2021ES102055

PATIENT
  Age: 40 Year
  Sex: Female

DRUGS (1)
  1. KISQALI [Suspect]
     Active Substance: RIBOCICLIB
     Indication: BREAST CANCER
     Dosage: 400 MG (400 MG CADA 24 H X 3 SEMANAS /4 SEMANAS 200 MG COMPRIMIDOS RECUBIERTOS CON PELICULA)
     Route: 048
     Dates: start: 20201228

REACTIONS (1)
  - Photopsia [Recovered/Resolved]

NARRATIVE: CASE EVENT DATE: 20201228
